FAERS Safety Report 8412083-2 (Version None)
Quarter: 2012Q2

REPORT INFORMATION
  Report Type: 
  Country: None (occurrence: None)
  Receive Date: 20120605
  Receipt Date: 20120502
  Transmission Date: 20120825
  Serious: No
  Sender: FDA-Public Use
  Company Number: US-AMGEN-USASP2012027824

PATIENT
  Age: 47 Year
  Sex: Female

DRUGS (1)
  1. ENBREL [Suspect]
     Indication: RHEUMATOID ARTHRITIS
     Dosage: 50 MG, QWK
     Dates: start: 20110418

REACTIONS (6)
  - DYSPNOEA [None]
  - NASOPHARYNGITIS [None]
  - PYREXIA [None]
  - INFLUENZA [None]
  - DIARRHOEA [None]
  - FREQUENT BOWEL MOVEMENTS [None]
